FAERS Safety Report 5793700-2 (Version None)
Quarter: 2008Q2

REPORT INFORMATION
  Report Type: 
  Country: None (occurrence: None)
  Receive Date: 20080627
  Receipt Date: 20080616
  Transmission Date: 20081010
  Serious: Yes (Hospitalization)
  Sender: FDA-Public Use
  Company Number: DE-BAXTER-2008BH005456

PATIENT
  Age: 62 Year
  Sex: Male

DRUGS (15)
  1. EXTRANEAL [Suspect]
     Indication: RENAL FAILURE
     Route: 033
  2. PHYSIONEAL 40 VIAFLEX [Suspect]
     Indication: RENAL FAILURE
     Route: 033
  3. PHYSIONEAL 40 VIAFLEX [Suspect]
     Route: 033
  4. VANCOMYCIN [Concomitant]
     Route: 042
  5. ASPIRIN [Concomitant]
     Indication: ADVERSE EVENT
  6. BISOPROLOL FUMARATE [Concomitant]
     Indication: ADVERSE EVENT
  7. TOREM /GFR/ [Concomitant]
     Indication: CARDIAC FAILURE
  8. ACTRAPID INSULIN NOVO [Concomitant]
     Indication: DIABETES MELLITUS
     Route: 058
  9. PROTRAPHANE [Concomitant]
     Indication: DIABETES MELLITUS
     Route: 058
  10. BONDIOL [Concomitant]
     Indication: HYPERPARATHYROIDISM
     Route: 048
  11. DEKRISTOL [Concomitant]
     Indication: HYPERPARATHYROIDISM
  12. CALCIUM ACETATE [Concomitant]
     Indication: HYPERPARATHYROIDISM
     Route: 048
  13. FERRO ^SANOL^ [Concomitant]
     Indication: IRON DEFICIENCY ANAEMIA
     Route: 048
  14. CLONIDINE [Concomitant]
     Indication: HYPERTENSION
     Route: 048
  15. RAMIPRIL [Concomitant]
     Indication: HYPERTENSION
     Route: 048

REACTIONS (4)
  - DEVICE LEAKAGE [None]
  - ERYSIPELAS [None]
  - PERITONITIS [None]
  - STAPHYLOCOCCAL INFECTION [None]
